FAERS Safety Report 8200441-0 (Version None)
Quarter: 2012Q1

REPORT INFORMATION
  Report Type: 
  Country: None (occurrence: None)
  Receive Date: 20120312
  Receipt Date: 20120301
  Transmission Date: 20120608
  Serious: Yes (Hospitalization)
  Sender: FDA-Public Use
  Company Number: US-SANOFI-AVENTIS-2012SA014349

PATIENT
  Age: 46 Year
  Sex: Male

DRUGS (5)
  1. LANTUS [Suspect]
     Dosage: DOSE:80 UNIT(S)
     Route: 058
     Dates: start: 20070101
  2. APIDRA [Suspect]
     Dosage: 60-70 UNITS
     Route: 058
     Dates: start: 20070101
  3. SOLOSTAR [Suspect]
     Dates: start: 20070101
  4. APIDRA [Suspect]
     Dosage: 60-70 UNITS
     Route: 058
     Dates: start: 20070101
  5. SOLOSTAR [Suspect]
     Dates: start: 20070101

REACTIONS (4)
  - PRODUCT QUALITY ISSUE [None]
  - HOSPITALISATION [None]
  - EXPIRED DRUG ADMINISTERED [None]
  - BLOOD GLUCOSE INCREASED [None]
